FAERS Safety Report 5608147-9 (Version None)
Quarter: 2008Q1

REPORT INFORMATION
  Report Type: 
  Country: None (occurrence: None)
  Receive Date: 20080130
  Receipt Date: 20080118
  Transmission Date: 20080703
  Serious: Yes (Death, Disabling, Other)
  Sender: FDA-Public Use
  Company Number: US-ELI_LILLY_AND_COMPANY-US200801004541

PATIENT
  Age: 72 Year
  Sex: Male

DRUGS (3)
  1. GEMZAR [Suspect]
     Indication: LUNG ADENOCARCINOMA STAGE IV
  2. CARBOPLATIN [Concomitant]
     Indication: LUNG ADENOCARCINOMA STAGE IV
  3. GEFITINIB [Concomitant]
     Indication: LUNG ADENOCARCINOMA STAGE IV
     Dosage: 250 MG, DAILY (1/D)
     Route: 048

REACTIONS (3)
  - DISEASE PROGRESSION [None]
  - REFRACTORY ANAEMIA [None]
  - SPINAL CORD COMPRESSION [None]
